FAERS Safety Report 8603039-5 (Version None)
Quarter: 2012Q3

REPORT INFORMATION
  Report Type: 
  Country: None (occurrence: None)
  Receive Date: 20120817
  Receipt Date: 20120614
  Transmission Date: 20120928
  Serious: No
  Sender: FDA-Public Use
  Company Number: US-GLAXOSMITHKLINE-A0982515A

PATIENT
  Age: 60 Year
  Sex: Female
  Weight: 69.8 kg

DRUGS (4)
  1. SYNTHROID [Concomitant]
  2. LASIX [Concomitant]
  3. VOTRIENT [Suspect]
     Indication: MALIGNANT SOFT TISSUE NEOPLASM
     Dosage: 800MG PER DAY
     Route: 048
     Dates: start: 20120515
  4. CIPROFLOXACIN HCL [Concomitant]

REACTIONS (3)
  - BLOOD PRESSURE INCREASED [None]
  - NAUSEA [None]
  - DIARRHOEA [None]
